FAERS Safety Report 5096166-3 (Version None)
Quarter: 2006Q3

REPORT INFORMATION
  Report Type: 
  Country: None (occurrence: None)
  Receive Date: 20060831
  Receipt Date: 20060822
  Transmission Date: 20061208
  Serious: Yes (Other)
  Sender: FDA-Public Use
  Company Number: 2006US-03392

PATIENT
  Age: 46 Year
  Sex: 0

DRUGS (13)
  1. ISOTRETINOIN [Suspect]
     Dosage: 20 MG, QOD
     Dates: start: 20051028, end: 20060701
  2. RANITIDINE [Concomitant]
  3. LEBRAX [Concomitant]
  4. FLORINES [Concomitant]
  5. PLAVIX [Concomitant]
  6. FUROSIMIDE [Concomitant]
  7. VASOTEC [Concomitant]
  8. TADOR [Concomitant]
  9. LEXAPRO [Concomitant]
  10. WELLBUTRIN FR [Concomitant]
  11. ZYRTEC [Concomitant]
  12. CELEBREX [Concomitant]
  13. TOPAMAX [Concomitant]

REACTIONS (2)
  - ABDOMINAL DISCOMFORT [None]
  - OFF LABEL USE [None]
